FAERS Safety Report 6119412-3 (Version None)
Quarter: 2009Q1

REPORT INFORMATION
  Report Type: 
  Country: None (occurrence: None)
  Receive Date: 20090316
  Receipt Date: 20090306
  Transmission Date: 20090719
  Serious: Yes (Death)
  Sender: FDA-Public Use
  Company Number: A0772834A

PATIENT
  Age: 51 Year
  Sex: Female
  Weight: 72.7 kg

DRUGS (3)
  1. AVANDIA [Suspect]
     Indication: DIABETES MELLITUS
     Dosage: 4MG TWICE PER DAY
     Route: 048
     Dates: end: 20070521
  2. METFORMIN HCL [Concomitant]
  3. ENALAPRIL [Concomitant]

REACTIONS (1)
  - MYOCARDIAL INFARCTION [None]
